FAERS Safety Report 13497295 (Version 1)
Quarter: 2017Q2

REPORT INFORMATION
  Report Type: Spontaneous
  Country: CA (occurrence: CA)
  Receive Date: 20170428
  Receipt Date: 20170428
  Transmission Date: 20170830
  Serious: Yes (Other)
  Sender: FDA-Public Use
  Company Number: CA-ASTELLAS-2017US015931

PATIENT
  Sex: Male

DRUGS (2)
  1. XTANDI [Suspect]
     Active Substance: ENZALUTAMIDE
     Indication: PROSTATE CANCER
     Route: 048
     Dates: start: 2012
  2. XTANDI [Suspect]
     Active Substance: ENZALUTAMIDE
     Indication: METASTASES TO BONE
     Route: 048

REACTIONS (3)
  - Spinal cord herniation [Recovering/Resolving]
  - Asthenia [Recovering/Resolving]
  - Fat tissue increased [Recovering/Resolving]
